FAERS Safety Report 6197998-0 (Version None)
Quarter: 2009Q2

REPORT INFORMATION
  Report Type: 
  Country: None (occurrence: None)
  Receive Date: 20090521
  Receipt Date: 20090514
  Transmission Date: 20091009
  Serious: Yes (Hospitalization)
  Sender: FDA-Public Use
  Company Number: US-ELI_LILLY_AND_COMPANY-US200904005005

PATIENT
  Sex: Female

DRUGS (7)
  1. FORTEO [Suspect]
     Indication: OSTEOPOROSIS
     Dosage: 20 UG, DAILY (1/D)
     Dates: start: 20080201
  2. NEXIUM [Concomitant]
  3. WELLBUTRIN [Concomitant]
  4. ALLEGRA [Concomitant]
  5. ZOCOR [Concomitant]
  6. ATENOLOL [Concomitant]
  7. SYNTHROID [Concomitant]

REACTIONS (2)
  - DEEP VEIN THROMBOSIS [None]
  - HAEMATOMA [None]
